FAERS Safety Report 24654346 (Version 4)
Quarter: 2025Q3

REPORT INFORMATION
  Report Type: Spontaneous
  Country: EU (occurrence: EU)
  Receive Date: 20241122
  Receipt Date: 20250730
  Transmission Date: 20251021
  Serious: Yes (Other)
  Sender: NOVARTIS
  Company Number: EU-002147023-NVSC2024PL223200

PATIENT
  Age: 10 Year
  Sex: Female

DRUGS (2)
  1. KYMRIAH [Suspect]
     Active Substance: TISAGENLECLEUCEL
     Indication: Acute leukaemia
     Route: 065
     Dates: start: 202209, end: 202209
  2. SORAFENIB [Concomitant]
     Active Substance: SORAFENIB
     Indication: Acute leukaemia
     Route: 065

REACTIONS (3)
  - Cytokine release syndrome [Recovered/Resolved]
  - Post-depletion B-cell recovery [Recovered/Resolved]
  - Off label use [Unknown]
